FAERS Safety Report 25570574 (Version 1)
Quarter: 2025Q3

REPORT INFORMATION
  Report Type: Spontaneous
  Country: GB (occurrence: GB)
  Receive Date: 20250717
  Receipt Date: 20250717
  Transmission Date: 20251021
  Serious: Yes (Hospitalization, Disabling, Other)
  Sender: ALKEM
  Company Number: None

PATIENT
  Age: 24 Year
  Sex: Female

DRUGS (2)
  1. DULOXETINE HYDROCHLORIDE [Suspect]
     Active Substance: DULOXETINE HYDROCHLORIDE
     Indication: Anxiety
     Route: 065
  2. GABAPENTIN [Suspect]
     Active Substance: GABAPENTIN
     Indication: Product used for unknown indication
     Route: 065

REACTIONS (11)
  - Adverse reaction [Unknown]
  - Akathisia [Recovering/Resolving]
  - Suicidal ideation [Recovering/Resolving]
  - Mydriasis [Recovering/Resolving]
  - Cogwheel rigidity [Recovering/Resolving]
  - Neuralgia [Recovering/Resolving]
  - Derealisation [Recovering/Resolving]
  - Muscular weakness [Recovering/Resolving]
  - Muscle rigidity [Recovering/Resolving]
  - Seizure [Recovering/Resolving]
  - Tremor [Recovering/Resolving]

NARRATIVE: CASE EVENT DATE: 20240601
